FAERS Safety Report 15960033 (Version 1)
Quarter: 2019Q1

REPORT INFORMATION
  Report Type: Spontaneous
  Country: US (occurrence: US)
  Receive Date: 20190214
  Receipt Date: 20190214
  Transmission Date: 20190417
  Serious: No
  Sender: FDA-Public Use
  Company Number: US-ROCHE-2136598

PATIENT
  Age: 99 Year
  Sex: Male

DRUGS (1)
  1. ERIVEDGE [Suspect]
     Active Substance: VISMODEGIB
     Indication: BASAL CELL CARCINOMA
     Route: 065
     Dates: start: 20180327, end: 20180605

REACTIONS (3)
  - Fluid retention [Unknown]
  - Confusional state [Unknown]
  - Dysphagia [Unknown]

NARRATIVE: CASE EVENT DATE: 20180604
